FAERS Safety Report 12392711 (Version 2)
Quarter: 2018Q1

REPORT INFORMATION
  Report Type: Spontaneous
  Country: US (occurrence: US)
  Receive Date: 20160523
  Receipt Date: 20180226
  Transmission Date: 20180508
  Serious: No
  Sender: FDA-Public Use
  Company Number: US-JAZZ-2015-US-014736

PATIENT
  Age: 73 Year
  Sex: Male
  Weight: 88.44 kg

DRUGS (2)
  1. XYREM [Suspect]
     Active Substance: SODIUM OXYBATE
     Dosage: 3 G, BID
     Route: 048
     Dates: start: 201106
  2. XYREM [Suspect]
     Active Substance: SODIUM OXYBATE
     Indication: SLEEP DISORDER
     Dosage: 2.25 G, BID
     Route: 048
     Dates: start: 201105, end: 201106

REACTIONS (4)
  - Therapeutic response unexpected [Unknown]
  - Myalgia [Unknown]
  - Pre-existing condition improved [Unknown]
  - Unevaluable event [Unknown]

NARRATIVE: CASE EVENT DATE: 201508
